FAERS Safety Report 23807831 (Version 1)
Quarter: 2024Q2

REPORT INFORMATION
  Report Type: Spontaneous
  Country: US (occurrence: US)
  Receive Date: 20240502
  Receipt Date: 20240502
  Transmission Date: 20240716
  Serious: No
  Sender: FDA-Public Use
  Company Number: US-CSLP-29701239102-V13682788-3

PATIENT
  Age: 26 Year
  Sex: Male

DRUGS (1)
  1. ANTICOAGULANT SODIUM CITRATE [Suspect]
     Active Substance: SODIUM CITRATE
     Indication: Anticoagulant therapy
     Route: 050
     Dates: start: 20240418, end: 20240418

REACTIONS (5)
  - Dizziness [Recovered/Resolved]
  - Pallor [Recovered/Resolved]
  - Muscle spasms [Recovered/Resolved]
  - Tetany [Recovered/Resolved]
  - Pain [Recovered/Resolved]

NARRATIVE: CASE EVENT DATE: 20240418
